FAERS Safety Report 8359226-7 (Version None)
Quarter: 2012Q1

REPORT INFORMATION
  Report Type: 
  Country: None (occurrence: None)
  Receive Date: 20111004
  Receipt Date: 20110422
  Transmission Date: 20120608
  Serious: No
  Sender: FDA-Public Use
  Company Number: 2011IP000077

PATIENT
  Age: 55 Year
  Sex: Female

DRUGS (2)
  1. BEPREVE [Suspect]
     Indication: EYELID OEDEMA
     Dosage: 1 GTT; BID; OPH
     Route: 047
     Dates: start: 20110421, end: 20110422
  2. LISINOPRIL [Concomitant]

REACTIONS (4)
  - HEART RATE INCREASED [None]
  - BLOOD PRESSURE INCREASED [None]
  - PUPILS UNEQUAL [None]
  - DRUG HYPERSENSITIVITY [None]
